FAERS Safety Report 6989712-3 (Version None)
Quarter: 2010Q3

REPORT INFORMATION
  Report Type: 
  Country: None (occurrence: None)
  Receive Date: 20100916
  Receipt Date: 20100225
  Transmission Date: 20110219
  Serious: Yes (Disabling, Other)
  Sender: FDA-Public Use
  Company Number: US-PFIZER INC-2010025171

PATIENT
  Sex: Female
  Weight: 58.957 kg

DRUGS (6)
  1. LYRICA [Suspect]
     Indication: NEURALGIA
     Dosage: 150 MG, 2X/DAY
     Route: 048
     Dates: start: 20090201
  2. CYMBALTA [Concomitant]
     Dosage: UNK
  3. OXYCONTIN [Concomitant]
     Dosage: 30 MG, 2X/DAY
  4. HYDROCODONE [Concomitant]
     Dosage: UNK, AS NEEDED
  5. ZOLPIDEM [Concomitant]
     Dosage: 10 MG, DAILY
  6. NEUROLAX [Concomitant]
     Dosage: 1-2 TIMES A DAY

REACTIONS (3)
  - BACK DISORDER [None]
  - ECZEMA [None]
  - RASH PAPULAR [None]
